FAERS Safety Report 7953638-9 (Version None)
Quarter: 2011Q4

REPORT INFORMATION
  Report Type: 
  Country: None (occurrence: None)
  Receive Date: 20111202
  Receipt Date: 20111128
  Transmission Date: 20120403
  Serious: Yes (Hospitalization, Disabling, Other)
  Sender: FDA-Public Use
  Company Number: US-ELI_LILLY_AND_COMPANY-US201106004327

PATIENT
  Sex: Female
  Weight: 99.773 kg

DRUGS (4)
  1. COZAAR [Concomitant]
     Indication: HYPERTENSION
     Dosage: 50 MG, QD
  2. ADVAIR DISKUS 100/50 [Concomitant]
     Dosage: 1 DF, BID
  3. IBUPROFEN [Concomitant]
     Indication: PAIN
     Dosage: UNK
     Dates: start: 20010101
  4. BYETTA [Suspect]
     Dosage: UNK UNK, BID
     Dates: start: 20090501, end: 20100509

REACTIONS (2)
  - PANCREATITIS [None]
  - RENAL DISORDER [None]
